FAERS Safety Report 6239746-1 (Version None)
Quarter: 2009Q2

REPORT INFORMATION
  Report Type: 
  Country: None (occurrence: None)
  Receive Date: 20090619
  Receipt Date: 20090611
  Transmission Date: 20091009
  Serious: Yes (Other)
  Sender: FDA-Public Use
  Company Number: ADR3812009

PATIENT
  Sex: Female

DRUGS (2)
  1. ALENDRONIC ACID (MFR: UNKNOWN) [Suspect]
     Dosage: ORAL
     Route: 048
     Dates: start: 20060201
  2. CALCIUM (1000 MG) [Concomitant]

REACTIONS (2)
  - BLINDNESS [None]
  - DIABETIC RETINOPATHY [None]
